FAERS Safety Report 15774720 (Version 4)
Quarter: 2019Q1

REPORT INFORMATION
  Report Type: Report from Study
  Country: JP (occurrence: JP)
  Receive Date: 20181230
  Receipt Date: 20190312
  Transmission Date: 20190417
  Serious: Yes (Life-Threatening, Hospitalization, Other)
  Sender: FDA-Public Use
  Company Number: PHJP2018JP021399

PATIENT
  Age: 80 Year
  Sex: Male

DRUGS (2)
  1. ZYKADIA [Suspect]
     Active Substance: CERITINIB
     Indication: NON-SMALL CELL LUNG CANCER STAGE IV
     Dosage: 750 MG, QD
     Route: 048
     Dates: start: 20161207, end: 20170104
  2. ZYKADIA [Suspect]
     Active Substance: CERITINIB
     Dosage: 600 MG, QD
     Route: 048
     Dates: start: 20170111, end: 20170207

REACTIONS (9)
  - Decreased appetite [Unknown]
  - Hepatic function abnormal [Recovering/Resolving]
  - Non-small cell lung cancer stage IV [Unknown]
  - Dyspnoea [Unknown]
  - Malaise [Unknown]
  - Hyperglycaemia [Recovered/Resolved]
  - Thirst [Unknown]
  - Hyperglycaemic hyperosmolar nonketotic syndrome [Recovering/Resolving]
  - Malignant neoplasm progression [Unknown]

NARRATIVE: CASE EVENT DATE: 20170104
